FAERS Safety Report 23920983 (Version 1)
Quarter: 2024Q2

REPORT INFORMATION
  Report Type: Spontaneous
  Country: US (occurrence: None)
  Receive Date: 20240529
  Receipt Date: 20240529
  Transmission Date: 20240716
  Serious: Yes (Hospitalization)
  Sender: FDA-Public Use
  Company Number: None

PATIENT
  Sex: Female

DRUGS (2)
  1. TEMOZOLOMIDE [Suspect]
     Active Substance: TEMOZOLOMIDE
     Indication: Non-Hodgkin^s lymphoma
     Dosage: OTHER FREQUENCY : DAY 2-5 OF 28;?
     Route: 048
     Dates: start: 20240512
  2. TEMOZOLOMIDE [Concomitant]
     Active Substance: TEMOZOLOMIDE
     Dosage: OTHER FREQUENCY : OTHER;?
     Route: 048
     Dates: start: 20240512

REACTIONS (1)
  - Hospitalisation [None]
